FAERS Safety Report 5978824-9 (Version None)
Quarter: 2008Q4

REPORT INFORMATION
  Report Type: 
  Country: None (occurrence: None)
  Receive Date: 20081204
  Receipt Date: 20081126
  Transmission Date: 20090506
  Serious: Yes (Other)
  Sender: FDA-Public Use
  Company Number: PHBS2008GR06477

PATIENT
  Age: 73 Year
  Sex: Female

DRUGS (2)
  1. RIVASTIGMINE TARTRATE [Suspect]
  2. QUETIAPINE FUMARATE [Suspect]

REACTIONS (1)
  - ELECTROCARDIOGRAM QT PROLONGED [None]
